FAERS Safety Report 9742202 (Version 2)
Quarter: 2014Q1

REPORT INFORMATION
  Report Type: Spontaneous
  Country: US (occurrence: US)
  Receive Date: 20131210
  Receipt Date: 20140214
  Transmission Date: 20141002
  Serious: No
  Sender: FDA-Public Use
  Company Number: US-TEVA-449896USA

PATIENT
  Age: 28 Year
  Sex: Male

DRUGS (1)
  1. CLARAVIS [Suspect]
     Dosage: 1 DOSAGE FORMS DAILY; 40
     Route: 048
     Dates: start: 20131024

REACTIONS (1)
  - Back pain [Recovered/Resolved]
